FAERS Safety Report 9301614 (Version 1)
Quarter: 2013Q2

REPORT INFORMATION
  Report Type: Spontaneous
  Country: PL (occurrence: PL)
  Receive Date: 20130521
  Receipt Date: 20130521
  Transmission Date: 20140414
  Serious: Yes (Hospitalization)
  Sender: FDA-Public Use
  Company Number: PL-BRISTOL-MYERS SQUIBB COMPANY-18883728

PATIENT
  Age: 74 Year
  Sex: Male

DRUGS (3)
  1. SPRYCEL (CML) TABS [Suspect]
     Indication: CHRONIC MYELOID LEUKAEMIA
     Route: 048
  2. ENCORTON [Concomitant]
     Dates: start: 20130204, end: 20130402
  3. KALIPOZ [Concomitant]
     Dates: start: 20130204

REACTIONS (3)
  - Atrioventricular block second degree [Recovered/Resolved]
  - Supraventricular extrasystoles [Recovered/Resolved]
  - Pleural effusion [Unknown]
